FAERS Safety Report 10675836 (Version 2)
Quarter: 2015Q1

REPORT INFORMATION
  Report Type: Spontaneous
  Country: IT (occurrence: IT)
  Receive Date: 20141225
  Receipt Date: 20150112
  Transmission Date: 20150720
  Serious: Yes (Other)
  Sender: FDA-Public Use
  Company Number: IT-ROCHE-1514064

PATIENT
  Age: 73 Year
  Sex: Male

DRUGS (1)
  1. ROCEFIN [Suspect]
     Active Substance: CEFTRIAXONE SODIUM
     Indication: UPPER RESPIRATORY TRACT INFECTION
     Dosage: 1 G/3.5 ML POWDER AND SOLVENT FOR SOLUTION FOR INJECTION; 1 VIAL OF POWDER+ 13.5 ML AMPOULE SOLV.
     Route: 030
     Dates: start: 20141215, end: 20141215

REACTIONS (2)
  - Presyncope [Recovering/Resolving]
  - Hyperhidrosis [Recovering/Resolving]

NARRATIVE: CASE EVENT DATE: 20141215
